FAERS Safety Report 4436205-3 (Version None)
Quarter: 2004Q3

REPORT INFORMATION
  Report Type: 
  Country: None (occurrence: None)
  Receive Date: 20040830
  Receipt Date: 20040518
  Transmission Date: 20050211
  Serious: Yes (Other)
  Sender: FDA-Public Use
  Company Number: US-BRISTOL-MYERS SQUIBB COMPANY-12591160

PATIENT
  Age: 70 Year
  Sex: Male
  Weight: 45 kg

DRUGS (6)
  1. ERBITUX [Suspect]
     Indication: COLON CANCER METASTATIC
     Route: 042
     Dates: start: 20040514, end: 20040514
  2. BENADRYL [Concomitant]
     Indication: PREMEDICATION
     Route: 042
     Dates: start: 20040514, end: 20040514
  3. TYLENOL [Concomitant]
     Indication: PREMEDICATION
     Dosage: 650 MG = 10 GRAINS
     Route: 048
     Dates: start: 20040514, end: 20040514
  4. ALTACE [Concomitant]
  5. COUMADIN [Concomitant]
  6. HYTRIN [Concomitant]

REACTIONS (3)
  - INFUSION RELATED REACTION [None]
  - THERMOMETRY ABNORMAL [None]
  - URTICARIA [None]
